FAERS Safety Report 11360358 (Version 1)
Quarter: 2015Q3

REPORT INFORMATION
  Report Type: Report from Study
  Country: US (occurrence: US)
  Receive Date: 20150810
  Receipt Date: 20150810
  Transmission Date: 20151125
  Serious: No
  Sender: FDA-Public Use
  Company Number: PHEH2014US020819

PATIENT
  Age: 44 Year
  Sex: Female

DRUGS (4)
  1. EXTAVIA [Suspect]
     Active Substance: INTERFERON BETA-1B
     Dosage: WEEK (5-6), 0.1875MG, (0.75ML) QOD
     Route: 058
     Dates: start: 20140922
  2. EXTAVIA [Suspect]
     Active Substance: INTERFERON BETA-1B
     Dosage: (WEEK 1-2) 0.0625MG 0.25 ML, QOD
     Route: 058
     Dates: start: 20140922
  3. EXTAVIA [Suspect]
     Active Substance: INTERFERON BETA-1B
     Indication: MULTIPLE SCLEROSIS
     Dosage: WEEK (3-4) 0.125MG (0.5ML), QOD
     Route: 058
     Dates: start: 20140922
  4. EXTAVIA [Suspect]
     Active Substance: INTERFERON BETA-1B
     Dosage: WEEK (7 ABOVE), 0.25MG, (1 ML)
     Route: 058
     Dates: start: 20140922

REACTIONS (11)
  - Wrong technique in product usage process [Recovering/Resolving]
  - Injection site reaction [Not Recovered/Not Resolved]
  - Dermatitis contact [Not Recovered/Not Resolved]
  - Eye swelling [Not Recovered/Not Resolved]
  - Rash [Not Recovered/Not Resolved]
  - Swelling [Not Recovered/Not Resolved]
  - Pigmentation disorder [Not Recovered/Not Resolved]
  - Anxiety [Not Recovered/Not Resolved]
  - Limb discomfort [Recovering/Resolving]
  - Pain in extremity [Recovering/Resolving]
  - Injection site erythema [Not Recovered/Not Resolved]

NARRATIVE: CASE EVENT DATE: 20141012
